FAERS Safety Report 24112885 (Version 1)
Quarter: 2024Q3

REPORT INFORMATION
  Report Type: Report from Study
  Country: IN (occurrence: IN)
  Receive Date: 20240719
  Receipt Date: 20240719
  Transmission Date: 20241016
  Serious: Yes (Hospitalization)
  Sender: ELI LILLY AND CO
  Company Number: IN-ELI_LILLY_AND_COMPANY-IN202407011677

PATIENT
  Age: 68 Year
  Sex: Female

DRUGS (1)
  1. ABEMACICLIB [Suspect]
     Active Substance: ABEMACICLIB
     Indication: Breast cancer metastatic
     Dosage: 100 MG, UNKNOWN
     Route: 048
     Dates: start: 20231021

REACTIONS (6)
  - Cerebrovascular accident [Recovering/Resolving]
  - Infection [Recovering/Resolving]
  - Gait inability [Recovering/Resolving]
  - Haemoglobin decreased [Recovering/Resolving]
  - White blood cell count decreased [Recovering/Resolving]
  - Blood creatinine increased [Recovering/Resolving]

NARRATIVE: CASE EVENT DATE: 20231101
